FAERS Safety Report 16389849 (Version 1)
Quarter: 2019Q2

REPORT INFORMATION
  Report Type: Spontaneous
  Country: NL (occurrence: NL)
  Receive Date: 20190604
  Receipt Date: 20190604
  Transmission Date: 20190711
  Serious: Yes (Life-Threatening)
  Sender: FDA-Public Use
  Company Number: NL-PFIZER INC-2019235678

PATIENT
  Age: 60 Year
  Sex: Male
  Weight: 86 kg

DRUGS (3)
  1. FOLIN [FOLIC ACID] [Concomitant]
  2. IRINOTECAN HCL [Suspect]
     Active Substance: IRINOTECAN HYDROCHLORIDE
     Indication: PANCREATIC CARCINOMA
     Route: 042
     Dates: start: 20190507, end: 20190507
  3. METOCLOPRAMIDE HYDROCHLORIDE. [Concomitant]
     Active Substance: METOCLOPRAMIDE HYDROCHLORIDE
     Dosage: 10 MG, 1-3X/DAY

REACTIONS (2)
  - Cholinergic syndrome [Recovered/Resolved]
  - Hypersensitivity [Recovered/Resolved]

NARRATIVE: CASE EVENT DATE: 20190507
